FAERS Safety Report 8974355 (Version 1)
Quarter: 2012Q4

REPORT INFORMATION
  Report Type: Spontaneous
  Country: US (occurrence: None)
  Receive Date: 20121217
  Receipt Date: 20121217
  Transmission Date: 20130627
  Serious: Yes (Other)
  Sender: FDA-Public Use
  Company Number: None

PATIENT
  Age: 39 Year
  Sex: Female
  Weight: 68.04 kg

DRUGS (1)
  1. AMPHETAMINE SALTS [Suspect]
     Indication: ADHD
     Dosage: 20 mg 3x daily po
     Route: 048
     Dates: start: 20121210, end: 20121214

REACTIONS (2)
  - Tachycardia [None]
  - No therapeutic response [None]
